FAERS Safety Report 23994628 (Version 1)
Quarter: 2024Q2

REPORT INFORMATION
  Report Type: Spontaneous
  Country: US (occurrence: US)
  Receive Date: 20240620
  Receipt Date: 20240620
  Transmission Date: 20240716
  Serious: No
  Sender: FDA-Public Use
  Company Number: None

PATIENT
  Age: 12 Year
  Sex: Female

DRUGS (3)
  1. ISOTRETINOIN [Suspect]
     Active Substance: ISOTRETINOIN
     Indication: Acne
     Dosage: DOSE WAS INCREASED TO 40 MG/DAY, THEN 60 MG/DAY OVER THE NEXT 2 MONTHS
  2. ISOTRETINOIN [Suspect]
     Active Substance: ISOTRETINOIN
     Dosage: DOSE WAS INCREASED TO 40 MG/DAY, THEN 60 MG/DAY OVER THE NEXT 2 MONTHS
  3. ISOTRETINOIN [Suspect]
     Active Substance: ISOTRETINOIN

REACTIONS (2)
  - Abnormal dreams [Recovered/Resolved]
  - Urticaria [Recovered/Resolved]
